FAERS Safety Report 21217843 (Version 3)
Quarter: 2022Q4

REPORT INFORMATION
  Report Type: Report from Study
  Country: RO (occurrence: RO)
  Receive Date: 20220816
  Receipt Date: 20221013
  Transmission Date: 20230113
  Serious: Yes (Hospitalization, Other)
  Sender: FDA-Public Use
  Company Number: RO-BRISTOL-MYERS SQUIBB COMPANY-2022-087419

PATIENT
  Age: 68 Year
  Sex: Male
  Weight: 72 kg

DRUGS (9)
  1. IPILIMUMAB [Suspect]
     Active Substance: IPILIMUMAB
     Indication: Hepatocellular carcinoma
     Dosage: PRIOR TO THE EVENT ONSET, THE LAST DOSE WAS TAKEN ON 16-JUL-2021
     Route: 042
     Dates: start: 20210513, end: 20210716
  2. TENOFOVIR DISOPROXIL FUMARATE [Concomitant]
     Active Substance: TENOFOVIR DISOPROXIL FUMARATE
     Indication: Product used for unknown indication
     Dosage: ONGOING
     Route: 048
     Dates: start: 20180301
  3. ESSENTIAL FORTE N [Concomitant]
     Indication: Product used for unknown indication
     Dosage: PHOSPHOLIPIDS (ESSENTIALE FORTE)?1 DF- 2 UNITS NOS?ONGOING
     Route: 048
     Dates: start: 2018
  4. GABAPENTIN [Concomitant]
     Active Substance: GABAPENTIN
     Indication: Product used for unknown indication
     Dosage: GABAPENTIN (GABARAN)?ONGOING
     Route: 048
     Dates: start: 2010
  5. .ALPHA.-LIPOIC ACID [Concomitant]
     Active Substance: .ALPHA.-LIPOIC ACID
     Indication: Product used for unknown indication
     Dosage: THIOCTIC ACID (THIOSSEN)?ONGOING
     Route: 048
     Dates: start: 2015
  6. ROSUVASTATIN [Concomitant]
     Active Substance: ROSUVASTATIN
     Indication: Product used for unknown indication
     Dosage: ONGOING
     Route: 048
     Dates: start: 2010
  7. METFORMIN HYDROCHLORIDE [Concomitant]
     Active Substance: METFORMIN HYDROCHLORIDE
     Indication: Product used for unknown indication
     Dosage: METFORMIN (SIOFOR)?ONGOING
     Route: 048
     Dates: start: 2010
  8. TRAMADOL HYDROCHLORIDE [Concomitant]
     Active Substance: TRAMADOL HYDROCHLORIDE
     Indication: Product used for unknown indication
     Dosage: ONGOING
     Route: 048
     Dates: start: 20210412
  9. PANANGIN FORTE [Concomitant]
     Indication: Product used for unknown indication
     Dosage: PANANGIN FORTE (ASPARTAT DE POTASIU 316 MG, ASPARTAT DE MAGNEZIU 280 MG)?1 DF- 3 UNITS?ONGOING
     Route: 048
     Dates: start: 20220720

REACTIONS (1)
  - Enterocolitis haemorrhagic [Recovered/Resolved]

NARRATIVE: CASE EVENT DATE: 20220720
